FAERS Safety Report 7265816-5 (Version None)
Quarter: 2011Q1

REPORT INFORMATION
  Report Type: 
  Country: None (occurrence: None)
  Receive Date: 20110131
  Receipt Date: 20100405
  Transmission Date: 20110831
  Serious: Yes (Death, Other)
  Sender: FDA-Public Use
  Company Number: A0854363A

PATIENT
  Age: 65 Year
  Sex: Male

DRUGS (1)
  1. PROMACTA [Suspect]
     Dosage: 25MG PER DAY
     Route: 048
     Dates: start: 20091012, end: 20091105

REACTIONS (3)
  - PLATELET COUNT DECREASED [None]
  - DRUG INEFFECTIVE [None]
  - PROSTATE CANCER [None]
